FAERS Safety Report 16684042 (Version 3)
Quarter: 2024Q3

REPORT INFORMATION
  Report Type: Report from Study
  Country: IT (occurrence: IT)
  Receive Date: 20190808
  Receipt Date: 20240711
  Transmission Date: 20241017
  Serious: Yes (Other)
  Sender: PURDUE
  Company Number: IT-JNJFOC-20190726011

PATIENT
  Age: 13 Year
  Sex: Female
  Weight: 30.7 kg

DRUGS (12)
  1. MORPHINE SULFATE [Suspect]
     Active Substance: MORPHINE SULFATE
     Indication: Procedural pain
     Dosage: 2 MILLIGRAM PER MILLILITRE
     Route: 042
  2. MORPHINE SULFATE [Suspect]
     Active Substance: MORPHINE SULFATE
     Indication: Analgesic therapy
     Dosage: 2 MILLIGRAM PER MILLILITRE
     Route: 037
  3. MORPHINE SULFATE [Suspect]
     Active Substance: MORPHINE SULFATE
     Indication: Product used for unknown indication
  4. KETAMINE [Suspect]
     Active Substance: KETAMINE
     Indication: Analgesic therapy
     Dosage: UNK (AVERAGE DOSE 0.1 MG/KG)
     Route: 042
  5. KETAMINE [Suspect]
     Active Substance: KETAMINE
     Indication: Procedural pain
     Dosage: 2 MILLIGRAM PER MILLILITRE
     Route: 065
  6. KETAMINE [Suspect]
     Active Substance: KETAMINE
     Dosage: 1 MG/KG (1 MILLIGRAM/KILOGRAM)
     Route: 042
  7. KETAMINE [Suspect]
     Active Substance: KETAMINE
     Dosage: UNK
     Route: 065
  8. BACLOFEN [Suspect]
     Active Substance: BACLOFEN
     Indication: Analgesic therapy
     Dosage: UNK
     Route: 065
  9. BACLOFEN [Suspect]
     Active Substance: BACLOFEN
     Indication: Scoliosis
     Dosage: UNK
     Route: 037
  10. BACLOFEN [Suspect]
     Active Substance: BACLOFEN
     Dosage: UNK
     Route: 037
  11. SUFENTANIL [Suspect]
     Active Substance: SUFENTANIL
     Indication: Analgesic therapy
     Dosage: 0.1-0.2 ?G/KG
     Route: 042
  12. SUFENTANIL [Suspect]
     Active Substance: SUFENTANIL
     Indication: Procedural pain
     Dosage: UNK
     Route: 065

REACTIONS (4)
  - Sedation complication [Unknown]
  - Oxygen saturation decreased [Unknown]
  - Product use in unapproved indication [Unknown]
  - Respiratory depression [Unknown]
